FAERS Safety Report 15398448 (Version 1)
Quarter: 2018Q3

REPORT INFORMATION
  Report Type: Report from Study
  Country: US (occurrence: US)
  Receive Date: 20180918
  Receipt Date: 20180918
  Transmission Date: 20181010
  Serious: Yes (Hospitalization, Other)
  Sender: FDA-Public Use
  Company Number: US-ENDO PHARMACEUTICALS INC-2018-041080

PATIENT
  Age: 48 Year
  Sex: Male
  Weight: 96.15 kg

DRUGS (9)
  1. FOLIC ACID. [Concomitant]
     Active Substance: FOLIC ACID
     Indication: TOXICITY TO VARIOUS AGENTS
     Dosage: 1 MG, OD
     Route: 048
     Dates: start: 20161104, end: 20170211
  2. ADVIL [Concomitant]
     Active Substance: IBUPROFEN
     Indication: RHEUMATOID ARTHRITIS
     Dosage: 800 MG, OD
     Route: 048
     Dates: start: 20170102
  3. UPADACITINIB [Suspect]
     Active Substance: UPADACITINIB
     Dosage: 15 MG, OD
     Route: 048
     Dates: start: 20180707
  4. RHEUMATREX [Suspect]
     Active Substance: METHOTREXATE SODIUM
     Indication: RHEUMATOID ARTHRITIS
     Dosage: 1 DF, WEEKLY
     Route: 048
     Dates: start: 20170316, end: 20170616
  5. UPADACITINIB [Suspect]
     Active Substance: UPADACITINIB
     Indication: RHEUMATOID ARTHRITIS
     Dosage: 15 MG, OD
     Route: 048
     Dates: start: 20170622, end: 20180622
  6. PREDNISONE. [Concomitant]
     Active Substance: PREDNISONE
     Indication: RHEUMATOID ARTHRITIS
     Dosage: 7.5 MG, OD
     Route: 048
     Dates: start: 20170209, end: 20180508
  7. PREDNISONE. [Concomitant]
     Active Substance: PREDNISONE
     Dosage: 10 MG, OD
     Dates: start: 20180509
  8. VALTREX [Concomitant]
     Active Substance: VALACYCLOVIR HYDROCHLORIDE
     Indication: HERPES ZOSTER
     Dosage: 1 G, TID
     Route: 048
     Dates: start: 20180622, end: 20180705
  9. FOLIC ACID. [Concomitant]
     Active Substance: FOLIC ACID
     Indication: TOXICITY TO VARIOUS AGENTS
     Dosage: 1 MG, OD
     Route: 048
     Dates: start: 20171116, end: 20180622

REACTIONS (4)
  - Haematuria [Recovered/Resolved]
  - Hypotension [Recovered/Resolved]
  - Hypovolaemia [Recovered/Resolved]
  - Urinary tract infection [Recovered/Resolved]

NARRATIVE: CASE EVENT DATE: 20180620
